FAERS Safety Report 13560635 (Version 1)
Quarter: 2017Q2

REPORT INFORMATION
  Report Type: Spontaneous
  Country: US (occurrence: US)
  Receive Date: 20170518
  Receipt Date: 20170518
  Transmission Date: 20170830
  Serious: No
  Sender: FDA-Public Use
  Company Number: US-ROCHE-695185

PATIENT
  Sex: Female

DRUGS (2)
  1. NAPROSYN [Suspect]
     Active Substance: NAPROXEN
     Dosage: DOSE: HALF PILL
     Route: 048
  2. NAPROSYN [Suspect]
     Active Substance: NAPROXEN
     Indication: BURSITIS
     Dosage: FORM: PILL
     Route: 048

REACTIONS (3)
  - Abnormal sensation in eye [Unknown]
  - Dyspnoea [Unknown]
  - Abdominal distension [Unknown]
